FAERS Safety Report 19941818 (Version 1)
Quarter: 2021Q4

REPORT INFORMATION
  Report Type: Spontaneous
  Country: DE (occurrence: DE)
  Receive Date: 20211011
  Receipt Date: 20211011
  Transmission Date: 20220303
  Serious: Yes (Other)
  Sender: FDA-Public Use
  Company Number: DE-MLMSERVICE-20210927-3129943-1

PATIENT
  Sex: Female

DRUGS (1)
  1. BUDESONIDE [Suspect]
     Active Substance: BUDESONIDE
     Indication: Protein-losing gastroenteropathy
     Dosage: UNK
     Route: 048

REACTIONS (2)
  - Spinal fracture [Unknown]
  - Osteoporosis [Unknown]
